FAERS Safety Report 8001799-8 (Version None)
Quarter: 2011Q4

REPORT INFORMATION
  Report Type: 
  Country: None (occurrence: None)
  Receive Date: 20111222
  Receipt Date: 20111214
  Transmission Date: 20120403
  Serious: Yes (Life-Threatening, Hospitalization, Other)
  Sender: FDA-Public Use
  Company Number: JP-ROCHE-652275

PATIENT
  Sex: Female
  Weight: 56 kg

DRUGS (9)
  1. ACTEMRA [Suspect]
     Indication: RHEUMATOID ARTHRITIS
     Route: 041
     Dates: start: 20090721, end: 20090721
  2. METHOTREXATE [Suspect]
     Dosage: FORM: PERORAL AGENT
     Route: 048
     Dates: start: 20080314, end: 20080515
  3. RISEDRONATE SODIUM [Concomitant]
     Route: 048
  4. METHOTREXATE [Suspect]
     Dosage: FORM: PERORAL AGENT
     Route: 048
  5. PREDNISOLONE [Concomitant]
     Route: 048
  6. OMEPRAZOLE [Concomitant]
     Dosage: FORM: ENTERIC COATING DRUG
     Route: 048
  7. LOXONIN [Concomitant]
     Route: 048
  8. MUCOSTA [Concomitant]
     Route: 048
  9. METHOTREXATE [Suspect]
     Indication: RHEUMATOID ARTHRITIS
     Dosage: FORM: PERORAL AGENT
     Route: 048
     Dates: start: 20070101, end: 20080314

REACTIONS (3)
  - INTERSTITIAL LUNG DISEASE [None]
  - PNEUMOCYSTIS JIROVECI PNEUMONIA [None]
  - DIARRHOEA [None]
